FAERS Safety Report 9222228 (Version 4)
Quarter: 2013Q3

REPORT INFORMATION
  Report Type: Spontaneous
  Country: US (occurrence: US)
  Receive Date: 20130410
  Receipt Date: 20130901
  Transmission Date: 20140515
  Serious: Yes (Death, Hospitalization)
  Sender: FDA-Public Use
  Company Number: US-PFIZER INC-2013109397

PATIENT
  Age: 77 Year
  Sex: Male
  Weight: 68.93 kg

DRUGS (17)
  1. SUTENT [Suspect]
     Indication: RENAL CANCER
     Dosage: 50 MG, CYCLIC (4 WEEKS ON 2 WEEKS OFF)
     Route: 048
     Dates: end: 20120623
  2. SUTENT [Suspect]
     Indication: MALIGNANT URINARY TRACT NEOPLASM
     Dosage: 25 MG, DAILY, CYCLIC (4 WEEKS ON 2 WEEKS OFF)
     Route: 048
     Dates: start: 20130220, end: 20130623
  3. LEVOTHYROXINE [Concomitant]
     Dosage: UNK
  4. KEPPRA [Concomitant]
     Dosage: UNK
  5. JANUVIA [Concomitant]
     Dosage: UNK
  6. METOPROLOL [Concomitant]
     Dosage: UNK
  7. ADDERALL [Concomitant]
     Dosage: UNK
  8. BIOTIN [Concomitant]
     Dosage: UNK
  9. ENDOCET [Concomitant]
     Dosage: UNK, AS NEEDED
  10. TERAZOSIN [Concomitant]
     Dosage: UNK
  11. DIGOXIN [Concomitant]
     Dosage: UNK
  12. TEMAZEPAM [Concomitant]
     Dosage: UNK, AT BEDTIME
  13. WARFARIN [Concomitant]
     Dosage: UNK
  14. CALCITRIOL [Concomitant]
     Dosage: UNK
  15. IRON [Concomitant]
     Dosage: UNK
  16. VITAMIN C [Concomitant]
     Dosage: UNK
  17. OXYGEN [Concomitant]
     Dosage: UNK, AT NIGHT

REACTIONS (25)
  - Disease progression [Fatal]
  - Renal cancer metastatic [Fatal]
  - Decreased appetite [Unknown]
  - Hypoglycaemia [Unknown]
  - Renal failure [Unknown]
  - Hypertension [Unknown]
  - Dehydration [Recovering/Resolving]
  - Anaemia [Unknown]
  - Pallor [Unknown]
  - Fall [Unknown]
  - Fatigue [Not Recovered/Not Resolved]
  - Somnolence [Not Recovered/Not Resolved]
  - Insomnia [Unknown]
  - Weight decreased [Unknown]
  - Dizziness [Unknown]
  - Dyspnoea [Unknown]
  - Constipation [Unknown]
  - Pollakiuria [Unknown]
  - Arthralgia [Unknown]
  - Joint stiffness [Unknown]
  - Joint range of motion decreased [Unknown]
  - Asthenia [Unknown]
  - Balance disorder [Unknown]
  - Anxiety [Unknown]
  - Heart rate irregular [Unknown]
